FAERS Safety Report 8829289 (Version 1)
Quarter: 2012Q4

REPORT INFORMATION
  Report Type: 
  Country: US (occurrence: US)
  Receive Date: 20121008
  Receipt Date: 20121008
  Transmission Date: 20130627
  Serious: Yes (Death)
  Sender: FDA-Public Use
  Company Number: US-ROCHE-1138737

PATIENT
  Sex: Male

DRUGS (6)
  1. PEGASYS [Suspect]
     Indication: HEPATITIS C
     Route: 058
     Dates: start: 201203, end: 20120813
  2. ZOLOFT [Concomitant]
  3. RIBAVIRIN [Concomitant]
     Indication: HEPATITIS C
  4. ASA [Concomitant]
  5. METOPROLOL [Concomitant]
  6. NAPROXEN [Concomitant]

REACTIONS (2)
  - White blood cell count decreased [Unknown]
  - Death [Fatal]
